FAERS Safety Report 20483941 (Version 1)
Quarter: 2022Q1

REPORT INFORMATION
  Report Type: Spontaneous
  Country: US (occurrence: US)
  Receive Date: 20220217
  Receipt Date: 20220217
  Transmission Date: 20220424
  Serious: No
  Sender: FDA-Public Use
  Company Number: US-SUN PHARMACEUTICAL INDUSTRIES LTD-2021R1-300613

PATIENT
  Sex: Female
  Weight: 63.05 kg

DRUGS (1)
  1. VALACYCLOVIR [Suspect]
     Active Substance: VALACYCLOVIR HYDROCHLORIDE
     Indication: Herpes zoster
     Dosage: LOW DOSE, DAILY
     Route: 065

REACTIONS (2)
  - Dizziness [Unknown]
  - Loss of personal independence in daily activities [Unknown]
